FAERS Safety Report 23901564 (Version 2)
Quarter: 2024Q2

REPORT INFORMATION
  Report Type: Report from Study
  Country: JP (occurrence: JP)
  Receive Date: 20240526
  Receipt Date: 20240529
  Transmission Date: 20240716
  Serious: Yes (Other)
  Sender: FDA-Public Use
  Company Number: JP-SA-2024SA149736

PATIENT
  Age: 76 Year
  Sex: Female
  Weight: 66 kg

DRUGS (41)
  1. CAPLACIZUMAB [Suspect]
     Active Substance: CAPLACIZUMAB
     Indication: Thrombotic thrombocytopenic purpura
     Dosage: 10 MG, QD
     Route: 058
     Dates: start: 20230823, end: 20230926
  2. CAPLACIZUMAB [Suspect]
     Active Substance: CAPLACIZUMAB
     Indication: Thrombotic thrombocytopenic purpura
     Dosage: 10 MG, QD
     Route: 058
     Dates: start: 20230823, end: 20230926
  3. CAPLACIZUMAB [Suspect]
     Active Substance: CAPLACIZUMAB
     Indication: Thrombotic thrombocytopenic purpura
     Dosage: 10 MG, QD
     Route: 058
     Dates: start: 20230823, end: 20230926
  4. CAPLACIZUMAB [Suspect]
     Active Substance: CAPLACIZUMAB
     Indication: Thrombotic thrombocytopenic purpura
     Dosage: 10 MG, QD
     Route: 058
     Dates: start: 20230823, end: 20230926
  5. CAPLACIZUMAB [Suspect]
     Active Substance: CAPLACIZUMAB
     Dosage: 10 MG, 1X
     Route: 042
     Dates: start: 20230823, end: 20230823
  6. CAPLACIZUMAB [Suspect]
     Active Substance: CAPLACIZUMAB
     Dosage: 10 MG, 1X
     Route: 042
     Dates: start: 20230823, end: 20230823
  7. CAPLACIZUMAB [Suspect]
     Active Substance: CAPLACIZUMAB
     Dosage: 10 MG, 1X
     Route: 042
     Dates: start: 20230823, end: 20230823
  8. CAPLACIZUMAB [Suspect]
     Active Substance: CAPLACIZUMAB
     Dosage: 10 MG, 1X
     Route: 042
     Dates: start: 20230823, end: 20230823
  9. CAPLACIZUMAB [Suspect]
     Active Substance: CAPLACIZUMAB
     Dosage: 10 MG, 1X
     Route: 058
     Dates: start: 20230823, end: 20230823
  10. CAPLACIZUMAB [Suspect]
     Active Substance: CAPLACIZUMAB
     Dosage: 10 MG, 1X
     Route: 058
     Dates: start: 20230823, end: 20230823
  11. CAPLACIZUMAB [Suspect]
     Active Substance: CAPLACIZUMAB
     Dosage: 10 MG, 1X
     Route: 058
     Dates: start: 20230823, end: 20230823
  12. CAPLACIZUMAB [Suspect]
     Active Substance: CAPLACIZUMAB
     Dosage: 10 MG, 1X
     Route: 058
     Dates: start: 20230823, end: 20230823
  13. PREDNISOLONE [Suspect]
     Active Substance: PREDNISOLONE
     Indication: Thrombotic thrombocytopenic purpura
     Dosage: 50, QD (7 TIMES/WEEK)
     Route: 065
     Dates: start: 20230908, end: 20230914
  14. PREDNISOLONE [Suspect]
     Active Substance: PREDNISOLONE
     Dosage: 60, QD (7 TIMES/WEEK)
     Route: 065
     Dates: start: 20230829, end: 20230907
  15. PREDNISOLONE [Suspect]
     Active Substance: PREDNISOLONE
     Dosage: 40, QD (7 TIMES/WEEK)
     Route: 065
     Dates: start: 20230915, end: 20230921
  16. PREDNISOLONE [Suspect]
     Active Substance: PREDNISOLONE
     Dosage: 30, QD (7 TIMES/WEEK)
     Route: 065
     Dates: start: 20230922, end: 20230926
  17. PREDNISOLONE [Suspect]
     Active Substance: PREDNISOLONE
     Dosage: 25, QD (7 TIMES/WEEK)
     Route: 065
     Dates: start: 20230927, end: 20231004
  18. PREDNISOLONE [Suspect]
     Active Substance: PREDNISOLONE
     Dosage: 20, QD (7 TIMES/WEEK)
     Route: 065
     Dates: start: 20231005, end: 20231018
  19. PREDNISOLONE [Suspect]
     Active Substance: PREDNISOLONE
     Dosage: 15, QD (7 TIMES/WEEK)
     Route: 065
     Dates: start: 20231019, end: 20231101
  20. PREDNISOLONE [Suspect]
     Active Substance: PREDNISOLONE
     Dosage: 10, QD (7 TIMES/WEEK)
     Route: 065
     Dates: start: 20231102, end: 20231115
  21. PREDNISOLONE [Suspect]
     Active Substance: PREDNISOLONE
     Dosage: 8, QD (7 TIMES/WEEK)
     Route: 065
     Dates: start: 20231116, end: 20231130
  22. PREDNISOLONE [Suspect]
     Active Substance: PREDNISOLONE
     Dosage: 7, QD (7 TIMES/WEEK)
     Route: 065
     Dates: start: 20231201, end: 20231214
  23. PREDNISOLONE [Suspect]
     Active Substance: PREDNISOLONE
     Dosage: 6, QD (7 TIMES/WEEK)
     Route: 065
     Dates: start: 20231215, end: 20231228
  24. PREDNISOLONE [Suspect]
     Active Substance: PREDNISOLONE
     Dosage: 5, QD (7 TIMES/WEEK)
     Route: 065
     Dates: start: 20231229, end: 20240111
  25. PREDNISOLONE [Suspect]
     Active Substance: PREDNISOLONE
     Dosage: 4, QD (7 TIMES/WEEK)
     Route: 065
     Dates: start: 20240112, end: 20240124
  26. PREDNISOLONE [Suspect]
     Active Substance: PREDNISOLONE
     Dosage: 3, QD (7 TIMES/WEEK)
     Route: 065
     Dates: start: 20240125, end: 20240208
  27. PREDNISOLONE [Suspect]
     Active Substance: PREDNISOLONE
     Dosage: 2, QD (7 TIMES/WEEK)
     Route: 065
     Dates: start: 20240209, end: 20240222
  28. PREDNISOLONE [Suspect]
     Active Substance: PREDNISOLONE
     Dosage: 1, QD (7 TIMES/WEEK)
     Route: 065
     Dates: start: 20240223, end: 20240307
  29. AMLODIPINE BESYLATE [Concomitant]
     Active Substance: AMLODIPINE BESYLATE
     Indication: Hypertension
     Dosage: DAILY DOSE: 5 MG
     Route: 065
     Dates: start: 20230823, end: 20240502
  30. LANSOPRAZOLE [Concomitant]
     Active Substance: LANSOPRAZOLE
     Indication: Gastritis
     Dosage: UNK
     Route: 065
     Dates: start: 20230823, end: 20240502
  31. SENNOSIDES A AND B [Concomitant]
     Active Substance: SENNOSIDES A AND B
     Indication: Constipation
     Dosage: UNK
     Route: 065
     Dates: start: 20230828, end: 20230828
  32. CALONAL [Concomitant]
     Active Substance: ACETAMINOPHEN
     Indication: Back pain
     Dosage: UNK
     Route: 065
     Dates: start: 20230828, end: 20230828
  33. METOCLOPRAMIDE [Concomitant]
     Active Substance: METOCLOPRAMIDE
     Indication: Nausea
     Dosage: UNK
     Route: 065
     Dates: start: 20230828, end: 20230828
  34. DAYVIGO [Concomitant]
     Active Substance: LEMBOREXANT
     Indication: Insomnia
     Dosage: UNK
     Route: 065
     Dates: start: 20230828, end: 20230828
  35. SULFAMETHOXAZOLE\TRIMETHOPRIM [Concomitant]
     Active Substance: SULFAMETHOXAZOLE\TRIMETHOPRIM
     Indication: Pneumonia
     Dosage: UNK
     Route: 065
     Dates: start: 20230829, end: 20240222
  36. POTASSIUM CHLORIDE [Concomitant]
     Active Substance: POTASSIUM CHLORIDE
     Indication: Hypokalaemia
     Dosage: UNK
     Route: 065
     Dates: start: 20230902, end: 20230912
  37. SODIUM PICOSULFATE [Concomitant]
     Active Substance: SODIUM PICOSULFATE
     Indication: Constipation
     Dosage: UNK
     Route: 048
     Dates: start: 20230907, end: 20230907
  38. MOSAPRIDE CITRATE DIHYDRATE [Concomitant]
     Active Substance: MOSAPRIDE CITRATE DIHYDRATE
     Indication: Constipation
     Dosage: UNK
     Route: 065
     Dates: start: 20230908, end: 20230908
  39. DOMPERIDONE [Concomitant]
     Active Substance: DOMPERIDONE
     Indication: Nausea
     Dosage: UNK
     Route: 065
     Dates: start: 20230908, end: 20230908
  40. VALACYCLOVIR HYDROCHLORIDE [Concomitant]
     Active Substance: VALACYCLOVIR HYDROCHLORIDE
     Indication: Oral herpes
     Dosage: UNK
     Route: 065
     Dates: start: 20230913, end: 20230919
  41. AZILSARTAN KAMEDOXOMIL [Concomitant]
     Active Substance: AZILSARTAN KAMEDOXOMIL
     Indication: Hypertension
     Dosage: UNK
     Route: 065
     Dates: start: 20230915, end: 20240502

REACTIONS (3)
  - Oesophageal candidiasis [Recovered/Resolved]
  - Oral herpes [Recovered/Resolved]
  - Osteoporosis [Recovered/Resolved]

NARRATIVE: CASE EVENT DATE: 20230911
